FAERS Safety Report 9155509 (Version 1)
Quarter: 2013Q1

REPORT INFORMATION
  Report Type: Spontaneous
  Country: US (occurrence: US)
  Receive Date: 20130311
  Receipt Date: 20130311
  Transmission Date: 20140127
  Serious: Yes (Hospitalization)
  Sender: FDA-Public Use
  Company Number: US-GLAXOSMITHKLINE-A0718161A

PATIENT
  Age: 64 Year
  Sex: Male
  Weight: 108.2 kg

DRUGS (8)
  1. AVANDIA [Suspect]
     Indication: TYPE 2 DIABETES MELLITUS
     Dosage: 4MG TWICE PER DAY
     Route: 048
     Dates: start: 20050517, end: 20060319
  2. AVANDAMET [Suspect]
     Indication: TYPE 2 DIABETES MELLITUS
     Route: 048
     Dates: start: 20041031, end: 20051001
  3. INSULIN [Concomitant]
  4. CYMBALTA [Concomitant]
  5. HYDROCHLOROTHIAZIDE [Concomitant]
  6. COUMADIN [Concomitant]
  7. LISINOPRIL [Concomitant]
  8. NORVASC [Concomitant]

REACTIONS (4)
  - Heart injury [Not Recovered/Not Resolved]
  - Myocardial infarction [Unknown]
  - Cardiac failure congestive [Unknown]
  - Pulmonary hypertension [Unknown]
